FAERS Safety Report 25146732 (Version 1)
Quarter: 2025Q2

REPORT INFORMATION
  Report Type: Spontaneous
  Country: IT (occurrence: None)
  Receive Date: 20250401
  Receipt Date: 20250401
  Transmission Date: 20250716
  Serious: Yes (Other)
  Sender: INCYTE
  Company Number: IT-002147023-NVSC2025IT034127

PATIENT
  Age: 4 Year

DRUGS (5)
  1. RUXOLITINIB [Suspect]
     Active Substance: RUXOLITINIB
     Indication: Graft versus host disease in skin
     Dosage: 2.5 MG, BID
     Route: 065
  2. RUXOLITINIB [Suspect]
     Active Substance: RUXOLITINIB
     Indication: Graft versus host disease in lung
     Dosage: 5 MG, BID (AFTER 2 WEEKS, OVER 1 YEARS)
     Route: 065
  3. ACYCLOVIR [Concomitant]
     Active Substance: ACYCLOVIR
     Indication: Product used for unknown indication
  4. POSACONAZOLE [Concomitant]
     Active Substance: POSACONAZOLE
     Indication: Product used for unknown indication
     Dosage: 12 MG/KG, QD (IN 3 ADMINISTRATIONS)
  5. LANSOPRAZOLE [Concomitant]
     Active Substance: LANSOPRAZOLE
     Indication: Product used for unknown indication
     Dosage: 1 MG/KG, QD

REACTIONS (1)
  - Drug ineffective [Unknown]
